FAERS Safety Report 23071228 (Version 1)
Quarter: 2023Q4

REPORT INFORMATION
  Report Type: Spontaneous
  Country: US (occurrence: US)
  Receive Date: 20231016
  Receipt Date: 20231016
  Transmission Date: 20240109
  Serious: Yes (Hospitalization, Other)
  Sender: FDA-Public Use
  Company Number: US-ABBVIE-5451075

PATIENT
  Sex: Male

DRUGS (1)
  1. RINVOQ [Suspect]
     Active Substance: UPADACITINIB
     Indication: Dermatitis atopic
     Dosage: START DATE TEXT: UNKNOWN
     Route: 048

REACTIONS (3)
  - Atrial fibrillation [Unknown]
  - Dyspnoea [Unknown]
  - Ventricular fibrillation [Unknown]
